FAERS Safety Report 6764530-X (Version None)
Quarter: 2010Q2

REPORT INFORMATION
  Report Type: 
  Country: None (occurrence: None)
  Receive Date: 20100610
  Receipt Date: 20100603
  Transmission Date: 20101027
  Serious: Yes (Death)
  Sender: FDA-Public Use
  Company Number: TW-BAXTER-2010BH014627

PATIENT
  Sex: Male

DRUGS (4)
  1. DIANEAL [Suspect]
     Indication: PERITONEAL DIALYSIS
     Route: 033
     Dates: start: 20040301
  2. DIANEAL [Suspect]
     Route: 033
     Dates: start: 20040301
  3. EXTRANEAL [Suspect]
     Indication: PERITONEAL DIALYSIS
     Route: 033
     Dates: start: 20040301
  4. EXTRANEAL [Suspect]
     Route: 033
     Dates: start: 20040301

REACTIONS (1)
  - ACUTE MYOCARDIAL INFARCTION [None]
